FAERS Safety Report 6196911-X (Version None)
Quarter: 2009Q2

REPORT INFORMATION
  Report Type: 
  Country: None (occurrence: None)
  Receive Date: 20090520
  Receipt Date: 20090508
  Transmission Date: 20091009
  Serious: Yes (Other)
  Sender: FDA-Public Use
  Company Number: US-WYE-H08188909

PATIENT
  Sex: Female
  Weight: 58.11 kg

DRUGS (5)
  1. EFFEXOR XR [Suspect]
     Indication: DEPRESSION
     Dosage: OVERDOSE AMOUNT UNKNOWN
     Route: 048
     Dates: start: 20090130, end: 20090130
  2. EFFEXOR XR [Suspect]
     Indication: ANXIETY
  3. ADDERALL 10 [Suspect]
     Dosage: OVERDOSE AMOUNT UNSPECIFIED
  4. TRAZODONE HCL [Suspect]
     Dosage: OVERDOSE AMOUNT UNSPECIFIED
  5. CLONAZEPAM [Suspect]
     Dosage: OVERDOSE AMOUNT UNSPECIFIED

REACTIONS (9)
  - AGGRESSION [None]
  - DEPRESSION [None]
  - FEELING ABNORMAL [None]
  - INTENTIONAL OVERDOSE [None]
  - PERSONALITY DISORDER [None]
  - PSYCHOTIC BEHAVIOUR [None]
  - SUICIDAL IDEATION [None]
  - SUICIDE ATTEMPT [None]
  - VOMITING [None]
